FAERS Safety Report 20862318 (Version 1)
Quarter: 2022Q2

REPORT INFORMATION
  Report Type: Spontaneous
  Country: US (occurrence: None)
  Receive Date: 20220523
  Receipt Date: 20220523
  Transmission Date: 20220721
  Serious: No
  Sender: FDA-Public Use
  Company Number: None

PATIENT
  Age: 38 Year
  Sex: Female
  Weight: 105 kg

DRUGS (1)
  1. NIRMATRELVIR\RITONAVIR [Suspect]
     Active Substance: NIRMATRELVIR\RITONAVIR
     Dosage: OTHER QUANTITY : 150MGX2,100MGX1PK ;?FREQUENCY : TWICE A DAY;?
     Route: 048
     Dates: start: 20220510, end: 20220512

REACTIONS (1)
  - Stomatitis [None]

NARRATIVE: CASE EVENT DATE: 20220512
